FAERS Safety Report 10313081 (Version 1)
Quarter: 2014Q3

REPORT INFORMATION
  Report Type: Spontaneous
  Country: US (occurrence: US)
  Receive Date: 20140718
  Receipt Date: 20140718
  Transmission Date: 20150326
  Serious: No
  Sender: FDA-Public Use
  Company Number: US-PFIZER INC-2014199370

PATIENT
  Age: 43 Year
  Sex: Female
  Weight: 63.49 kg

DRUGS (10)
  1. EFFEXOR XR [Suspect]
     Active Substance: VENLAFAXINE HYDROCHLORIDE
     Dosage: 75 MG, UNK
     Route: 048
     Dates: start: 201407, end: 201407
  2. PRAVASTATIN [Concomitant]
     Active Substance: PRAVASTATIN\PRAVASTATIN SODIUM
     Dosage: UNK
  3. EFFEXOR XR [Suspect]
     Active Substance: VENLAFAXINE HYDROCHLORIDE
     Dosage: 300 MG, UNK
     Route: 048
     Dates: start: 201407, end: 201407
  4. DICYCLOMINE [Concomitant]
     Active Substance: DICYCLOMINE HYDROCHLORIDE
     Dosage: UNK
  5. EFFEXOR XR [Suspect]
     Active Substance: VENLAFAXINE HYDROCHLORIDE
     Indication: ANXIETY
     Dosage: 37.5 MG, 1X/DAY
     Route: 048
     Dates: start: 2014, end: 201407
  6. EFFEXOR XR [Suspect]
     Active Substance: VENLAFAXINE HYDROCHLORIDE
     Dosage: 150 MG, UNK
     Route: 048
     Dates: start: 201407, end: 201407
  7. EFFEXOR XR [Suspect]
     Active Substance: VENLAFAXINE HYDROCHLORIDE
     Dosage: 37.5 MG, UNK
     Route: 048
     Dates: start: 201407
  8. OMEPRAZOLE. [Concomitant]
     Active Substance: OMEPRAZOLE
     Dosage: UNK
  9. EFFEXOR XR [Suspect]
     Active Substance: VENLAFAXINE HYDROCHLORIDE
     Dosage: 75 MG, UNK
     Route: 048
     Dates: start: 201407, end: 201407
  10. LOSARTAN [Concomitant]
     Active Substance: LOSARTAN
     Dosage: UNK

REACTIONS (5)
  - Paraesthesia oral [Not Recovered/Not Resolved]
  - Feeling abnormal [Not Recovered/Not Resolved]
  - Dizziness [Not Recovered/Not Resolved]
  - Paraesthesia [Not Recovered/Not Resolved]
  - Drug ineffective [Not Recovered/Not Resolved]

NARRATIVE: CASE EVENT DATE: 201407
